FAERS Safety Report 18286568 (Version 1)
Quarter: 2020Q3

REPORT INFORMATION
  Report Type: Spontaneous
  Country: DE (occurrence: DE)
  Receive Date: 20200920
  Receipt Date: 20200920
  Transmission Date: 20201103
  Serious: Yes (Hospitalization)
  Sender: FDA-Public Use
  Company Number: DE-ROCHE-2676447

PATIENT
  Sex: Female

DRUGS (2)
  1. GAZYVARO [Suspect]
     Active Substance: OBINUTUZUMAB
     Indication: CHRONIC LYMPHOCYTIC LEUKAEMIA
     Dosage: DAY 1
     Route: 065
  2. GAZYVARO [Suspect]
     Active Substance: OBINUTUZUMAB
     Dosage: DAY 2
     Route: 065

REACTIONS (1)
  - Aplastic anaemia [Recovered/Resolved]
